FAERS Safety Report 7591772-6 (Version None)
Quarter: 2011Q3

REPORT INFORMATION
  Report Type: 
  Country: None (occurrence: None)
  Receive Date: 20110706
  Receipt Date: 20110621
  Transmission Date: 20111222
  Serious: Yes (Other)
  Sender: FDA-Public Use
  Company Number: BR-BAYER-2011-043379

PATIENT
  Age: 63 Year
  Sex: Female
  Weight: 59 kg

DRUGS (5)
  1. LEVOTHYROXINE SODIUM [Concomitant]
     Dosage: 125 ?G, QD
     Route: 048
  2. ATENOLOL [Concomitant]
     Dosage: 25 MG, QD
     Route: 048
  3. CANDESARTAN CILEXETIL [Concomitant]
     Dosage: 8 MG, QD
     Route: 048
  4. NEXAVAR [Suspect]
     Indication: THYROID CANCER METASTATIC
     Dosage: 800 MG, UNK
     Route: 048
     Dates: start: 20110314
  5. SIMVASTATIN [Concomitant]
     Dosage: 20 MG, QD
     Route: 048

REACTIONS (11)
  - HYPERAESTHESIA [None]
  - HYPERTENSION [None]
  - ALOPECIA [None]
  - MUCOSAL INFLAMMATION [None]
  - PRURITUS [None]
  - ABDOMINAL PAIN UPPER [None]
  - HYPERKERATOSIS [None]
  - RASH [None]
  - FATIGUE [None]
  - RASH ERYTHEMATOUS [None]
  - INSOMNIA [None]
